FAERS Safety Report 24338758 (Version 1)
Quarter: 2024Q3

REPORT INFORMATION
  Report Type: Spontaneous
  Country: US (occurrence: None)
  Receive Date: 20240918
  Receipt Date: 20240918
  Transmission Date: 20241016
  Serious: Yes (Hospitalization)
  Sender: Public
  Company Number: None

PATIENT
  Age: 82 Year
  Sex: Female

DRUGS (1)
  1. PROLIA [Suspect]
     Active Substance: DENOSUMAB
     Indication: Senile osteoporosis
     Dosage: FREQUENCY : ONCE;?
     Route: 058

REACTIONS (3)
  - Dizziness [None]
  - Nausea [None]
  - Bradycardia [None]

NARRATIVE: CASE EVENT DATE: 20240815
